FAERS Safety Report 4471084-X (Version None)
Quarter: 2004Q4

REPORT INFORMATION
  Report Type: 
  Country: None (occurrence: None)
  Receive Date: 20041011
  Receipt Date: 20041001
  Transmission Date: 20050328
  Serious: Yes (Death)
  Sender: FDA-Public Use
  Company Number: CA-AMGEN-US094059

PATIENT
  Sex: Male

DRUGS (4)
  1. ETANERCEPT [Suspect]
     Indication: PSORIASIS
     Route: 058
     Dates: start: 20030812, end: 20030903
  2. ETANERCEPT [Suspect]
     Route: 058
     Dates: start: 20031104, end: 20040903
  3. CRESTOR [Concomitant]
     Dates: start: 20040612
  4. ASPIRIN [Concomitant]
     Dates: start: 20040612

REACTIONS (1)
  - MYOCARDIAL INFARCTION [None]
